FAERS Safety Report 19065932 (Version 1)
Quarter: 2021Q1

REPORT INFORMATION
  Report Type: Spontaneous
  Country: JP (occurrence: JP)
  Receive Date: 20210327
  Receipt Date: 20210327
  Transmission Date: 20210420
  Serious: Yes (Hospitalization)
  Sender: FDA-Public Use
  Company Number: JP-UCBSA-2021013647

PATIENT
  Age: 35 Year
  Sex: Male

DRUGS (7)
  1. ZONISAMIDE. [Concomitant]
     Active Substance: ZONISAMIDE
     Indication: EPILEPSY
     Dosage: 200 MILLIGRAM, ONCE DAILY (QD)
  2. PERAMPANEL [Concomitant]
     Active Substance: PERAMPANEL
     Indication: EPILEPSY
     Route: 050
  3. VIMPAT [Suspect]
     Active Substance: LACOSAMIDE
     Dosage: 400 MG DAILY
     Route: 048
  4. VIMPAT [Suspect]
     Active Substance: LACOSAMIDE
     Dosage: 250 MG DAILY
     Route: 048
  5. LAMOTRIGINE. [Concomitant]
     Active Substance: LAMOTRIGINE
     Indication: EPILEPSY
     Dosage: 125 MILLIGRAM, ONCE DAILY (QD)
     Route: 050
  6. ZONISAMIDE. [Concomitant]
     Active Substance: ZONISAMIDE
     Dosage: 100 MILLIGRAM, ONCE DAILY (QD)
     Route: 050
  7. VIMPAT [Suspect]
     Active Substance: LACOSAMIDE
     Indication: EPILEPSY
     Dosage: 100 MG DAILY
     Route: 048

REACTIONS (5)
  - Central nervous system vasculitis [Unknown]
  - Postictal paralysis [Unknown]
  - Dysuria [Unknown]
  - Dizziness [Unknown]
  - Partial seizures with secondary generalisation [Unknown]
